FAERS Safety Report 4552680-8 (Version None)
Quarter: 2005Q1

REPORT INFORMATION
  Report Type: 
  Country: None (occurrence: None)
  Receive Date: 20050114
  Receipt Date: 20041004
  Transmission Date: 20050727
  Serious: Yes (Other)
  Sender: FDA-Public Use
  Company Number: PHBS2004BR13138

PATIENT
  Age: 37 Year
  Sex: Female

DRUGS (1)
  1. ELIDEL [Suspect]
     Indication: DERMATITIS CONTACT
     Dosage: UNK, BID
     Route: 061
     Dates: start: 20041003, end: 20041003

REACTIONS (21)
  - APPLICATION SITE WARMTH [None]
  - DERMATITIS ALLERGIC [None]
  - DIZZINESS [None]
  - DYSPHAGIA [None]
  - DYSPNOEA [None]
  - ERYTHEMA [None]
  - EYE IRRITATION [None]
  - FEELING ABNORMAL [None]
  - GENERALISED ERYTHEMA [None]
  - HEADACHE [None]
  - NASAL DISCOMFORT [None]
  - OCULAR HYPERAEMIA [None]
  - PHARYNGEAL ERYTHEMA [None]
  - PHARYNGITIS [None]
  - PRURITUS GENERALISED [None]
  - SKIN BURNING SENSATION [None]
  - STOMATITIS [None]
  - SWELLING [None]
  - SWELLING FACE [None]
  - THROAT IRRITATION [None]
  - TREMOR [None]
